FAERS Safety Report 16117678 (Version 2)
Quarter: 2019Q2

REPORT INFORMATION
  Report Type: Spontaneous
  Country: PT (occurrence: PT)
  Receive Date: 20190326
  Receipt Date: 20190404
  Transmission Date: 20190711
  Serious: Yes (Other)
  Sender: FDA-Public Use
  Company Number: PT-ROCHE-2286195

PATIENT
  Age: 5 Year
  Sex: Male

DRUGS (5)
  1. KAINEVER [Concomitant]
     Active Substance: ESTAZOLAM
  2. HARVONI [Suspect]
     Active Substance: LEDIPASVIR\SOFOSBUVIR
     Indication: CHRONIC HEPATITIS C
     Dosage: MOST RECENT DOSE: 16/SEP/2015
     Route: 065
     Dates: start: 20150625
  3. RIBAVIRIN. [Suspect]
     Active Substance: RIBAVIRIN
     Indication: CHRONIC HEPATITIS C
     Dosage: MOST RECENT DOSE: 16/SEP/2015
     Route: 065
     Dates: start: 20150625
  4. METHADONE [Concomitant]
     Active Substance: METHADONE HYDROCHLORIDE
     Route: 065
  5. VICTAN [Concomitant]
     Active Substance: ETHYL LOFLAZEPATE

REACTIONS (2)
  - Hepatitis C [Unknown]
  - Drug ineffective [Unknown]

NARRATIVE: CASE EVENT DATE: 201512
